FAERS Safety Report 6409269-5 (Version None)
Quarter: 2009Q4

REPORT INFORMATION
  Report Type: 
  Country: None (occurrence: None)
  Receive Date: 20091019
  Receipt Date: 20091019
  Transmission Date: 20100525
  Serious: Yes (Hospitalization)
  Sender: FDA-Public Use
  Company Number: None

PATIENT
  Age: 27 Year
  Sex: Female
  Weight: 90 kg

DRUGS (1)
  1. ECULIZUMAB 900MG ALEXION [Suspect]
     Indication: HAEMOLYTIC URAEMIC SYNDROME
     Dosage: 900MG WEEKLY IV
     Route: 042
     Dates: start: 20090915, end: 20091006

REACTIONS (2)
  - COUGH [None]
  - DYSPNOEA [None]
